FAERS Safety Report 21254949 (Version 1)
Quarter: 2022Q3

REPORT INFORMATION
  Report Type: Spontaneous
  Country: TR (occurrence: TR)
  Receive Date: 20220825
  Receipt Date: 20220825
  Transmission Date: 20221027
  Serious: Yes (Life-Threatening, Hospitalization, Other)
  Sender: FDA-Public Use
  Company Number: TR-OTSUKA-2022_041973

PATIENT
  Age: 19 Year
  Sex: Female

DRUGS (1)
  1. ABILIFY [Suspect]
     Active Substance: ARIPIPRAZOLE
     Indication: Generalised anxiety disorder
     Dosage: 5 MG
     Route: 065
     Dates: start: 20220728

REACTIONS (3)
  - Suicide attempt [Recovering/Resolving]
  - Intentional overdose [Unknown]
  - Product use in unapproved indication [Unknown]

NARRATIVE: CASE EVENT DATE: 20220728
